FAERS Safety Report 20759795 (Version 1)
Quarter: 2022Q2

REPORT INFORMATION
  Report Type: Spontaneous
  Country: CN (occurrence: CN)
  Receive Date: 20220427
  Receipt Date: 20220427
  Transmission Date: 20220721
  Serious: Yes (Other)
  Sender: FDA-Public Use
  Company Number: CN-ALLERGAN-2213556US

PATIENT
  Sex: Male
  Weight: 62 kg

DRUGS (4)
  1. BIMATOPROST\TIMOLOL [Suspect]
     Active Substance: BIMATOPROST\TIMOLOL
     Indication: Eye injury
     Dosage: 0.03 ML, QD
     Route: 047
     Dates: start: 20220414, end: 20220418
  2. BRINZOLAMIDE [Suspect]
     Active Substance: BRINZOLAMIDE
     Indication: Eye injury
     Dosage: 0.05 ML, BID
     Route: 047
     Dates: start: 20220414, end: 20220418
  3. PRED FORTE [Suspect]
     Active Substance: PREDNISOLONE ACETATE
     Indication: Eye injury
     Dosage: 0.05 ML, TID
     Route: 047
     Dates: start: 20220414, end: 20220418
  4. SODIUM HYALURONATE [Concomitant]
     Active Substance: HYALURONATE SODIUM
     Indication: Eye injury
     Dosage: 0.05 ML, TID
     Route: 047
     Dates: start: 20220414, end: 20220422

REACTIONS (2)
  - Herpes virus infection [Recovering/Resolving]
  - Eyelid oedema [Recovering/Resolving]

NARRATIVE: CASE EVENT DATE: 20220416
